FAERS Safety Report 8431400-0 (Version None)
Quarter: 2012Q2

REPORT INFORMATION
  Report Type: 
  Country: None (occurrence: None)
  Receive Date: 20120613
  Receipt Date: 20120608
  Transmission Date: 20120825
  Serious: No
  Sender: FDA-Public Use
  Company Number: US-PFIZER INC-2012138674

PATIENT
  Sex: Female

DRUGS (1)
  1. NORVASC [Suspect]
     Dosage: UNK
     Dates: end: 20120301

REACTIONS (3)
  - PEAU D'ORANGE [None]
  - RASH GENERALISED [None]
  - SKIN DISORDER [None]
